FAERS Safety Report 20042850 (Version 1)
Quarter: 2021Q4

REPORT INFORMATION
  Report Type: Spontaneous
  Country: US (occurrence: US)
  Receive Date: 20211108
  Receipt Date: 20211108
  Transmission Date: 20220304
  Serious: No
  Sender: FDA-Public Use
  Company Number: US-TEVA-2021-US-1971426

PATIENT
  Age: 61 Year
  Sex: Male

DRUGS (2)
  1. TESTOSTERONE [Suspect]
     Active Substance: TESTOSTERONE
     Indication: Blood testosterone decreased
     Dosage: 50 MG/ONCE DAILY
     Route: 061
  2. TESTOSTERONE [Suspect]
     Active Substance: TESTOSTERONE
     Dosage: ONCE DAILY
     Route: 061

REACTIONS (3)
  - Product physical issue [Not Recovered/Not Resolved]
  - Product residue present [Not Recovered/Not Resolved]
  - Product administered at inappropriate site [Unknown]
